FAERS Safety Report 5537665-7 (Version None)
Quarter: 2007Q4

REPORT INFORMATION
  Report Type: 
  Country: None (occurrence: None)
  Receive Date: 20071207
  Receipt Date: 20071126
  Transmission Date: 20080405
  Serious: Yes (Death, Hospitalization)
  Sender: FDA-Public Use
  Company Number: US-AVENTIS-200717304US

PATIENT
  Sex: Male

DRUGS (2)
  1. RILUTEK [Suspect]
     Dosage: DOSE: 1TABLET
     Route: 048
     Dates: start: 20060801, end: 20060801
  2. LIPITOR [Concomitant]
     Dosage: DOSE: UNK
     Dates: end: 20060801

REACTIONS (3)
  - CHEST PAIN [None]
  - PNEUMONIA [None]
  - SEPSIS [None]
